FAERS Safety Report 7759499-5 (Version None)
Quarter: 2011Q3

REPORT INFORMATION
  Report Type: 
  Country: None (occurrence: None)
  Receive Date: 20110919
  Receipt Date: 20110919
  Transmission Date: 20111222
  Serious: Yes (Other)
  Sender: FDA-Public Use
  Company Number: None

PATIENT
  Age: 40 Year
  Sex: Female
  Weight: 95.254 kg

DRUGS (1)
  1. EFFEXOR XR [Suspect]
     Indication: ANXIETY
     Dosage: 150MG
     Route: 048
     Dates: start: 20090303, end: 20110415

REACTIONS (3)
  - WITHDRAWAL SYNDROME [None]
  - DRUG INEFFECTIVE [None]
  - ALCOHOLISM [None]
